FAERS Safety Report 9439134 (Version 1)
Quarter: 2013Q3

REPORT INFORMATION
  Report Type: Spontaneous
  Country: GB (occurrence: GB)
  Receive Date: 20130802
  Receipt Date: 20130802
  Transmission Date: 20140515
  Serious: Yes (Hospitalization)
  Sender: FDA-Public Use
  Company Number: GB-ABBOTT-13P-167-1122195-00

PATIENT
  Age: 45 Year
  Sex: Male
  Weight: 81 kg

DRUGS (2)
  1. HUMIRA [Suspect]
     Indication: CROHN^S DISEASE
     Route: 058
     Dates: start: 201303
  2. ASACOL [Concomitant]
     Indication: CROHN^S DISEASE
     Route: 048

REACTIONS (3)
  - Acute coronary syndrome [Recovering/Resolving]
  - Myocardial infarction [Unknown]
  - Vitamin B12 decreased [Unknown]
